FAERS Safety Report 4916104-0 (Version None)
Quarter: 2006Q1

REPORT INFORMATION
  Report Type: 
  Country: None (occurrence: None)
  Receive Date: 20060113
  Receipt Date: 20051001
  Transmission Date: 20060701
  Serious: No
  Sender: FDA-Public Use
  Company Number: 2005SP003360

PATIENT
  Age: 67 Year
  Sex: Male

DRUGS (5)
  1. LUNESTA [Suspect]
     Dosage: 2 MG, HS, ORAL
     Route: 048
     Dates: start: 20050930, end: 20051001
  2. AMBIEN [Concomitant]
  3. LOVASTATIN [Concomitant]
  4. ACCUPRIL [Concomitant]
  5. DIURETICS [Concomitant]

REACTIONS (3)
  - DRUG INEFFECTIVE [None]
  - DYSGEUSIA [None]
  - INITIAL INSOMNIA [None]
